FAERS Safety Report 4898786-5 (Version None)
Quarter: 2006Q1

REPORT INFORMATION
  Report Type: 
  Country: None (occurrence: None)
  Receive Date: 20060202
  Receipt Date: 20051014
  Transmission Date: 20060701
  Serious: Yes (Other)
  Sender: FDA-Public Use
  Company Number: PL-SOLVAY-00206000341

PATIENT
  Age: 62 Year
  Sex: Female
  Weight: 76 kg

DRUGS (4)
  1. PRESTARIUM FORTE [Suspect]
     Indication: HYPERTENSION
     Dosage: DAILY DOSE: 8 MILLIGRAM(S)
     Route: 048
     Dates: end: 20050914
  2. PRESTARIUM FORTE [Suspect]
     Dosage: DAILY DOSE:  UNKNOWN
     Route: 048
     Dates: start: 20050101
  3. BISOHEXAL [Suspect]
     Indication: HYPERTENSION
     Dosage: DAILY DOSE: 5 MILLIGRAM(S)
     Route: 048
     Dates: end: 20050914
  4. BISOHEXAL [Suspect]
     Dosage: DAILY DOSE:  UNKNOWN
     Route: 048
     Dates: start: 20050101

REACTIONS (2)
  - BLOOD PRESSURE INCREASED [None]
  - DRUG WITHDRAWAL SYNDROME [None]
